FAERS Safety Report 7240790-6 (Version None)
Quarter: 2011Q1

REPORT INFORMATION
  Report Type: 
  Country: None (occurrence: None)
  Receive Date: 20110124
  Receipt Date: 20110103
  Transmission Date: 20110831
  Serious: Yes (Other)
  Sender: FDA-Public Use
  Company Number: US-PFIZER INC-US-WYE-H16692610

PATIENT
  Sex: Female
  Weight: 96.6 kg

DRUGS (12)
  1. NEURONTIN [Suspect]
     Dosage: 100 MG, 2X/DAY
     Route: 048
     Dates: start: 20100401, end: 20100101
  2. LEVOTHYROXINE [Concomitant]
     Route: 048
  3. VENTOLIN [Concomitant]
     Route: 065
  4. SECTRAL [Suspect]
     Indication: TACHYCARDIA
     Route: 065
  5. ZYRTEC [Concomitant]
     Route: 048
  6. EFFEXOR [Suspect]
     Indication: DEPRESSION
     Dosage: 100 MG, 1X/DAY
     Route: 065
  7. SITAGLIPTIN [Concomitant]
     Route: 048
  8. BENICAR HCT [Concomitant]
     Route: 048
  9. ZANTAC [Concomitant]
     Route: 048
  10. LYRICA [Concomitant]
     Dosage: UNK
     Route: 065
     Dates: start: 20100301, end: 20100401
  11. NORFLEX [Concomitant]
     Route: 065
  12. BENADRYL [Concomitant]
     Route: 065

REACTIONS (7)
  - FACE OEDEMA [None]
  - DRUG INTERACTION [None]
  - OBSTRUCTIVE AIRWAYS DISORDER [None]
  - ERYTHEMA [None]
  - DYSPNOEA [None]
  - RASH [None]
  - HYPERSENSITIVITY [None]
